FAERS Safety Report 12633344 (Version 1)
Quarter: 2016Q3

REPORT INFORMATION
  Report Type: Spontaneous
  Country: US (occurrence: None)
  Receive Date: 20160808
  Receipt Date: 20160808
  Transmission Date: 20161109
  Serious: Yes (Disabling)
  Sender: FDA-Public Use
  Company Number: None

PATIENT
  Age: 84 Year
  Sex: Male
  Weight: 89.81 kg

DRUGS (1)
  1. TAMSULOSIN, .4 MG VA [Suspect]
     Active Substance: TAMSULOSIN
     Indication: NEPHROPATHY
     Dosage: 30 CAPSULE(S) ONCE A DAY TAKEN BY MOUTH
     Route: 048
     Dates: start: 20160526, end: 20160610

REACTIONS (1)
  - Back pain [None]

NARRATIVE: CASE EVENT DATE: 20160526
